FAERS Safety Report 5723628-5 (Version None)
Quarter: 2008Q2

REPORT INFORMATION
  Report Type: 
  Country: None (occurrence: None)
  Receive Date: 20080429
  Receipt Date: 20080429
  Transmission Date: 20081010
  Serious: Yes (Hospitalization, Other)
  Sender: FDA-Public Use
  Company Number: None

PATIENT
  Age: 67 Year
  Sex: Male
  Weight: 79.3795 kg

DRUGS (3)
  1. METOPROLOL SUCCINATE EXTENDED RELEASE [Suspect]
     Indication: ATRIAL FIBRILLATION
     Dosage: 1 TABLET EVERY DAY PO
     Route: 048
     Dates: start: 20070915, end: 20080327
  2. METOPROLOL SUCCINATE EXTENDED RELEASE [Suspect]
     Indication: HEART RATE ABNORMAL
     Dosage: 1 TABLET EVERY DAY PO
     Route: 048
     Dates: start: 20070915, end: 20080327
  3. TOPROL-XL [Suspect]

REACTIONS (2)
  - ATRIAL FIBRILLATION [None]
  - THERAPEUTIC RESPONSE UNEXPECTED WITH DRUG SUBSTITUTION [None]
